FAERS Safety Report 9168671 (Version 1)
Quarter: 2013Q1

REPORT INFORMATION
  Report Type: Spontaneous
  Country: US (occurrence: US)
  Receive Date: 20130318
  Receipt Date: 20130318
  Transmission Date: 20140127
  Serious: Yes (Hospitalization, Other)
  Sender: FDA-Public Use
  Company Number: US-PFIZER INC-2013089101

PATIENT
  Age: 47 Year
  Sex: Male
  Weight: 90.7 kg

DRUGS (2)
  1. LYRICA [Suspect]
     Indication: NEURALGIA
     Dosage: 75 MG, 2X/DAY
     Route: 048
  2. OXYCODONE [Concomitant]
     Dosage: 30 MG, AS NEEDED

REACTIONS (3)
  - Road traffic accident [Unknown]
  - Clavicle fracture [Unknown]
  - Drug ineffective [Unknown]
